FAERS Safety Report 4611864-0 (Version None)
Quarter: 2005Q2

REPORT INFORMATION
  Report Type: 
  Country: None (occurrence: None)
  Receive Date: 20050308
  Receipt Date: 20050117
  Transmission Date: 20051028
  Serious: Yes (Other)
  Sender: FDA-Public Use
  Company Number: 2005UW00872

PATIENT
  Age: 36 Year
  Sex: Female
  Weight: 104.32 kg

DRUGS (6)
  1. CRESTOR [Suspect]
     Indication: BLOOD CHOLESTEROL INCREASED
     Dosage: 10 MG
  2. AMARYL [Concomitant]
  3. ACTOS [Concomitant]
  4. ALLEGRA [Concomitant]
  5. BACTRIM [Concomitant]
  6. TOPAMAX [Concomitant]

REACTIONS (4)
  - ASTHENIA [None]
  - BLOOD GLUCOSE FLUCTUATION [None]
  - CHEST PAIN [None]
  - FEELING ABNORMAL [None]
